FAERS Safety Report 10014655 (Version 1)
Quarter: 2014Q1

REPORT INFORMATION
  Report Type: Spontaneous
  Country: US (occurrence: US)
  Receive Date: 20140317
  Receipt Date: 20140317
  Transmission Date: 20141002
  Serious: Yes (Other)
  Sender: FDA-Public Use
  Company Number: US-PFIZER INC-2014076591

PATIENT
  Sex: Female
  Weight: 79.37 kg

DRUGS (5)
  1. CELEBREX [Suspect]
     Dosage: 200 MG, 2X/DAY
  2. CELEBREX [Suspect]
     Dosage: 200 MG, 1X/DAY
  3. EFFEXOR XR [Suspect]
     Dosage: 225 MG, 2X/DAY
  4. EFFEXOR XR [Suspect]
     Dosage: 175 MG, UNK
  5. PROZAC [Suspect]
     Dosage: UNK

REACTIONS (1)
  - Arthropathy [Unknown]
